FAERS Safety Report 12985965 (Version 2)
Quarter: 2016Q4

REPORT INFORMATION
  Report Type: Spontaneous
  Country: CH (occurrence: CH)
  Receive Date: 20161130
  Receipt Date: 20161223
  Transmission Date: 20170207
  Serious: Yes (Death, Other)
  Sender: FDA-Public Use
  Company Number: CH-ALEXION PHARMACEUTICALS INC.-A201609180

PATIENT
  Sex: Female
  Weight: 79 kg

DRUGS (1)
  1. SOLIRIS [Suspect]
     Active Substance: ECULIZUMAB
     Indication: HAEMOLYTIC URAEMIC SYNDROME
     Dosage: 600 MG, SINGLE
     Route: 042
     Dates: start: 20161105

REACTIONS (3)
  - Renal failure [Fatal]
  - Atrial tachycardia [Fatal]
  - Cardiac failure [Fatal]
